FAERS Safety Report 10190163 (Version 2)
Quarter: 2014Q2

REPORT INFORMATION
  Report Type: Report from Study
  Country: US (occurrence: US)
  Receive Date: 20140522
  Receipt Date: 20140613
  Transmission Date: 20141212
  Serious: Yes (Hospitalization)
  Sender: FDA-Public Use
  Company Number: US-ABBVIE-14P-163-1237910-00

PATIENT
  Sex: Female

DRUGS (15)
  1. HUMIRA [Suspect]
     Indication: PSORIATIC ARTHROPATHY
  2. HUMIRA [Suspect]
     Indication: RHEUMATOID ARTHRITIS
  3. HUMIRA [Suspect]
     Indication: PSORIASIS
  4. METHOTREXATE [Concomitant]
     Indication: PSORIATIC ARTHROPATHY
  5. METHOTREXATE [Concomitant]
     Indication: RHEUMATOID ARTHRITIS
  6. TYLENOL WITH CODEINE [Concomitant]
     Indication: ARTHRALGIA
  7. LYRICA [Concomitant]
     Indication: ARTHRALGIA
     Dosage: 2 TABS IN THE MORNING AND 2 TABS AT NIGHT
  8. BUSPAR [Concomitant]
     Indication: DEPRESSION
  9. LEXAPRO [Concomitant]
     Indication: DEPRESSION
  10. SYNTHROID [Concomitant]
     Indication: HYPOTHYROIDISM
  11. FUROSEMIDE [Concomitant]
     Indication: HYPERTENSION
  12. FUROSEMIDE [Concomitant]
     Indication: FLUID RETENTION
  13. ULORIC [Concomitant]
     Indication: GOUT
  14. VANOS [Concomitant]
     Indication: PSORIASIS
     Route: 061
  15. DOVONEX [Concomitant]
     Indication: PSORIASIS
     Route: 061

REACTIONS (8)
  - Obesity [Recovering/Resolving]
  - Injection site pain [Not Recovered/Not Resolved]
  - Injection site pain [Not Recovered/Not Resolved]
  - Arthralgia [Not Recovered/Not Resolved]
  - Pain [Recovered/Resolved]
  - Hand fracture [Recovered/Resolved]
  - Foot fracture [Recovered/Resolved]
  - Fall [Recovered/Resolved]
